FAERS Safety Report 6505076-3 (Version None)
Quarter: 2009Q4

REPORT INFORMATION
  Report Type: 
  Country: None (occurrence: None)
  Receive Date: 20091216
  Receipt Date: 20090708
  Transmission Date: 20100525
  Serious: Yes (Hospitalization)
  Sender: FDA-Public Use
  Company Number: ADR5682009 (DK-DKMA-20091395)

PATIENT
  Sex: Female

DRUGS (6)
  1. SIMVASTATIN [Suspect]
     Indication: HYPERCHOLESTEROLAEMIA
     Dosage: 40MG/DAY
     Route: 048
     Dates: start: 20050101, end: 20090508
  2. LONEPROL [Concomitant]
  3. FUROSEMIDE [Concomitant]
  4. ALFACALCIDOL [Concomitant]
  5. FERROUS SUPHATE [Concomitant]
  6. RAMIPRIL [Concomitant]

REACTIONS (2)
  - DRUG INTERACTION [None]
  - RHABDOMYOLYSIS [None]
